FAERS Safety Report 6730189-0 (Version None)
Quarter: 2010Q2

REPORT INFORMATION
  Report Type: 
  Country: None (occurrence: None)
  Receive Date: 20100513
  Receipt Date: 20100427
  Transmission Date: 20101027
  Serious: Yes (Other)
  Sender: FDA-Public Use
  Company Number: 2008S1011872

PATIENT
  Age: 65 Year
  Sex: Female

DRUGS (10)
  1. PHOSPHOSODA FLAVOR NOT SPECIFIED [Suspect]
     Indication: COLONOSCOPY
     Dosage: 90 ML;TOTAL;PO
     Route: 048
     Dates: start: 20070128, end: 20070129
  2. FOSAMAX [Concomitant]
  3. QUININE [Concomitant]
  4. ALBUTEROL [Concomitant]
  5. ATROVENT [Concomitant]
  6. ADVAIR DISKUS 100/50 [Concomitant]
  7. DIOVAN /01319601/ [Concomitant]
  8. TRICOR [Concomitant]
  9. AVANDIA /01445801/ [Concomitant]
  10. REMERON [Concomitant]

REACTIONS (4)
  - ANAEMIA [None]
  - NEPHROSCLEROSIS [None]
  - RENAL FAILURE ACUTE [None]
  - RENAL FAILURE CHRONIC [None]
